FAERS Safety Report 19102174 (Version 1)
Quarter: 2021Q2

REPORT INFORMATION
  Report Type: Spontaneous
  Country: US (occurrence: US)
  Receive Date: 20210407
  Receipt Date: 20210407
  Transmission Date: 20210717
  Serious: No
  Sender: FDA-Public Use
  Company Number: US-GLAXOSMITHKLINE-USCH2021017810

PATIENT
  Age: 75 Year
  Sex: Female

DRUGS (1)
  1. VOLTAREN ARTHRITIS PAIN [Suspect]
     Active Substance: DICLOFENAC SODIUM
     Indication: ARTHRITIS
     Dosage: 2 OR 3 TIMES A DAY

REACTIONS (3)
  - Product administered at inappropriate site [Unknown]
  - Inappropriate schedule of product administration [Recovered/Resolved]
  - Therapeutic response unexpected [Unknown]
